FAERS Safety Report 4881251-9 (Version None)
Quarter: 2005Q4

REPORT INFORMATION
  Report Type: 
  Country: None (occurrence: None)
  Receive Date: 20051212
  Receipt Date: 20051017
  Transmission Date: 20060501
  Serious: Yes (Hospitalization)
  Sender: FDA-Public Use
  Company Number: 2005-02150

PATIENT
  Age: 58 Year
  Sex: Female
  Weight: 62.2 kg

DRUGS (3)
  1. VELCADE [Suspect]
     Indication: MULTIPLE MYELOMA
     Dosage: 1.30 MG.M2, 2/WEEK, INTRAVENOUS
     Route: 042
     Dates: start: 20050412, end: 20050812
  2. DOXIL [Suspect]
     Indication: MULTIPLE MYELOMA
     Dosage: 30.00 MG/M2, Q3 WEEKS, INTRAVENOUS
     Route: 042
     Dates: start: 20050412, end: 20050805
  3. METOPROLOL        (METOPROLOL) [Concomitant]

REACTIONS (4)
  - DIZZINESS POSTURAL [None]
  - NAUSEA [None]
  - THROMBOCYTOPENIA [None]
  - VOMITING [None]
